FAERS Safety Report 7971083-7 (Version None)
Quarter: 2011Q4

REPORT INFORMATION
  Report Type: 
  Country: None (occurrence: None)
  Receive Date: 20111212
  Receipt Date: 20111212
  Transmission Date: 20120403
  Serious: Yes (Hospitalization, Other)
  Sender: FDA-Public Use
  Company Number: None

PATIENT
  Age: 58 Year
  Sex: Male
  Weight: 107.95 kg

DRUGS (1)
  1. ZOLADEX [Suspect]
     Indication: PROSTATE CANCER

REACTIONS (20)
  - HYPERHIDROSIS [None]
  - INSOMNIA [None]
  - JOINT SWELLING [None]
  - DRUG HYPERSENSITIVITY [None]
  - RHEUMATOID ARTHRITIS [None]
  - PAIN [None]
  - OEDEMA PERIPHERAL [None]
  - HERPES ZOSTER [None]
  - BLOOD TESTOSTERONE DECREASED [None]
  - OSTEOPOROSIS [None]
  - HOT FLUSH [None]
  - DIABETES MELLITUS [None]
  - ANAEMIA [None]
  - GAIT DISTURBANCE [None]
  - CONDITION AGGRAVATED [None]
  - HEPATIC ENZYME INCREASED [None]
  - EATING DISORDER [None]
  - PYREXIA [None]
  - ACTIVITIES OF DAILY LIVING IMPAIRED [None]
  - HYPOTONIA [None]
